FAERS Safety Report 9779444 (Version 1)
Quarter: 2013Q4

REPORT INFORMATION
  Report Type: Spontaneous
  Country: BR (occurrence: BR)
  Receive Date: 20131223
  Receipt Date: 20131223
  Transmission Date: 20140711
  Serious: Yes (Hospitalization)
  Sender: FDA-Public Use
  Company Number: BR-PFIZER INC-2013364591

PATIENT
  Age: 51 Year
  Sex: Female
  Weight: 62 kg

DRUGS (6)
  1. LYRICA [Suspect]
     Dosage: 75 MG (ONE CAPSULE), EVERY 12 HOURS
     Route: 048
     Dates: start: 201306, end: 201309
  2. BUSCOPAN [Concomitant]
  3. METAMIZOLE SODIUM [Concomitant]
  4. DORFLEX [Concomitant]
  5. OSTEONUTRI [Concomitant]
  6. RIVOTRIL [Concomitant]
     Indication: PANIC DISORDER

REACTIONS (1)
  - Intervertebral disc protrusion [Unknown]
